FAERS Safety Report 19471918 (Version 2)
Quarter: 2021Q3

REPORT INFORMATION
  Report Type: Spontaneous
  Country: JP (occurrence: JP)
  Receive Date: 20210629
  Receipt Date: 20210713
  Transmission Date: 20211014
  Serious: No
  Sender: FDA-Public Use
  Company Number: JP-GLAXOSMITHKLINE-JP2021123513

PATIENT
  Age: 64 Year
  Sex: Male

DRUGS (3)
  1. SAMTIREL [Suspect]
     Active Substance: ATOVAQUONE
     Indication: PNEUMOCYSTIS JIROVECII PNEUMONIA
     Dosage: 5 ML, BID
     Route: 048
  2. SAMTIREL [Suspect]
     Active Substance: ATOVAQUONE
     Dosage: 10 ML, BID
     Route: 048
  3. SAMTIREL [Suspect]
     Active Substance: ATOVAQUONE
     Indication: ANTIFUNGAL PROPHYLAXIS
     Dosage: NO ADMINISTRATION
     Route: 048

REACTIONS (1)
  - Intercepted product prescribing error [Unknown]
